FAERS Safety Report 4716955-1 (Version None)
Quarter: 2005Q3

REPORT INFORMATION
  Report Type: 
  Country: None (occurrence: None)
  Receive Date: 20050712
  Receipt Date: 20050117
  Transmission Date: 20060218
  Serious: Yes (Other)
  Sender: FDA-Public Use
  Company Number: PHEH2005US01002

PATIENT
  Age: 60 Year
  Sex: Male

DRUGS (1)
  1. GLEEVEC [Suspect]
     Dosage: 400 MG, QD, ORAL
     Route: 048

REACTIONS (2)
  - ANGLE CLOSURE GLAUCOMA [None]
  - GLAUCOMA SURGERY [None]
